FAERS Safety Report 9853834 (Version 4)
Quarter: 2014Q1

REPORT INFORMATION
  Report Type: Report from Study
  Country: US (occurrence: US)
  Receive Date: 20140129
  Receipt Date: 20140212
  Transmission Date: 20141002
  Serious: Yes (Other)
  Sender: FDA-Public Use
  Company Number: US-TEVA-459122USA

PATIENT
  Sex: Female

DRUGS (2)
  1. CLARAVIS [Suspect]
     Dosage: 80 MILLIGRAM DAILY;
     Dates: start: 20130126, end: 201312
  2. ORAL CONTRACEPTIVE NOS [Concomitant]

REACTIONS (1)
  - Unintended pregnancy [Recovered/Resolved]
